FAERS Safety Report 7827965-X (Version None)
Quarter: 2011Q4

REPORT INFORMATION
  Report Type: 
  Country: None (occurrence: None)
  Receive Date: 20111020
  Receipt Date: 20111007
  Transmission Date: 20120403
  Serious: Yes (Hospitalization, Other)
  Sender: FDA-Public Use
  Company Number: NO-ACTELION-A-CH2011-54017

PATIENT
  Sex: Female
  Weight: 48 kg

DRUGS (6)
  1. TRACLEER [Suspect]
     Indication: SKIN ULCER
     Dosage: 125 MG, BID
     Route: 048
     Dates: start: 20110617, end: 20110913
  2. TRACLEER [Suspect]
     Dosage: 62.5 MG, BID
     Route: 048
     Dates: start: 20110914, end: 20110901
  3. TRACLEER [Suspect]
     Dosage: 62.5 MG, BID
     Route: 048
     Dates: start: 20110517, end: 20110616
  4. FERROUS SULFATE TAB [Suspect]
  5. ACETAMINOPHEN [Concomitant]
  6. NEXIUM [Concomitant]

REACTIONS (8)
  - DYSPEPSIA [None]
  - ANAEMIA [None]
  - ABDOMINAL PAIN [None]
  - CONCOMITANT DISEASE AGGRAVATED [None]
  - DIARRHOEA [None]
  - VOMITING [None]
  - CONSTIPATION [None]
  - NAUSEA [None]
